FAERS Safety Report 4960537-3 (Version None)
Quarter: 2006Q1

REPORT INFORMATION
  Report Type: 
  Country: None (occurrence: None)
  Receive Date: 20060329
  Receipt Date: 20060316
  Transmission Date: 20060701
  Serious: Yes (Hospitalization)
  Sender: FDA-Public Use
  Company Number: 2005170973

PATIENT
  Age: 53 Year
  Sex: Female
  Weight: 59.4 kg

DRUGS (11)
  1. SUTENT [Suspect]
     Indication: RENAL CELL CARCINOMA STAGE UNSPECIFIED
     Dosage: 50 MG (1 IN 1 D), ORAL
     Route: 048
     Dates: start: 20051102, end: 20051129
  2. PANTOPRAZOLE [Concomitant]
  3. CLONAZEPAM [Concomitant]
  4. EFFEXOR [Concomitant]
  5. MAGIC MOUTHWASH (ALUMINIUM HYDROXIDE, DIPHENHYDRAMINE HYDROCHLORIDE, L [Concomitant]
  6. PROCHLORPERAZINE [Concomitant]
  7. LOPERAMIDE HYDROCHLORIDE [Concomitant]
  8. MORPHINE [Concomitant]
  9. ALUMINUM HYDROXIDE AND MAGNESIUM TRISILICATE [Concomitant]
  10. GRAVOL TAB [Concomitant]
  11. SECARIS (MACROGOL, PROPYLENE GLYCOL) [Concomitant]

REACTIONS (1)
  - PNEUMOTHORAX [None]
